FAERS Safety Report 4693761-8 (Version None)
Quarter: 2005Q2

REPORT INFORMATION
  Report Type: 
  Country: None (occurrence: None)
  Receive Date: 20050616
  Receipt Date: 20050531
  Transmission Date: 20051028
  Serious: Yes (Other)
  Sender: FDA-Public Use
  Company Number: 2005PL000040

PATIENT
  Age: 37 Year
  Sex: Male

DRUGS (3)
  1. AZATHIOPRINE [Suspect]
     Indication: RENAL TRANSPLANT
     Dosage: PO
     Route: 048
  2. METHYLPREDNISOLONE [Suspect]
     Dosage: PO
     Route: 048
  3. CYCLOSPORINE [Suspect]
     Dosage: PO
     Route: 048

REACTIONS (5)
  - CHRONIC MYELOID LEUKAEMIA [None]
  - KARYOTYPE ANALYSIS ABNORMAL [None]
  - MARROW HYPERPLASIA [None]
  - MYELOFIBROSIS [None]
  - SPLEEN PALPABLE [None]
